FAERS Safety Report 10661375 (Version 1)
Quarter: 2014Q4

REPORT INFORMATION
  Report Type: Spontaneous
  Country: US (occurrence: None)
  Receive Date: 20141217
  Receipt Date: 20141217
  Transmission Date: 20150529
  Serious: No
  Sender: FDA-Public Use
  Company Number: None

PATIENT
  Age: 9 Year
  Sex: Female
  Weight: 43.6 kg

DRUGS (3)
  1. ETOPOSIDE (VP-16) [Suspect]
     Active Substance: ETOPOSIDE
     Dates: end: 20141124
  2. CYTARABINE. [Suspect]
     Active Substance: CYTARABINE
     Dosage: 132 MG IV ARAC BID ADMINISTERED DAYS 1-10.+#13;?+#13;?PATIENT ALSO RECEIVED 70 MG IT ARAC ON DAY I (NOV20/14) OF THERAPY.
     Dates: end: 20141129
  3. DAUNORUBICIN [Suspect]
     Active Substance: DAUNORUBICIN
     Dosage: 66 MG IV DAUNORUBICIN GIVEN ON DAYS 1,3,5
     Dates: end: 20141124

REACTIONS (6)
  - Peripheral artery thrombosis [None]
  - Hyperkalaemia [None]
  - Renal failure [None]
  - Multi-organ failure [None]
  - Gastrointestinal necrosis [None]
  - Colitis [None]

NARRATIVE: CASE EVENT DATE: 20141213
